FAERS Safety Report 12461572 (Version 1)
Quarter: 2016Q2

REPORT INFORMATION
  Report Type: Spontaneous
  Country: PT (occurrence: PT)
  Receive Date: 20160613
  Receipt Date: 20160613
  Transmission Date: 20160815
  Serious: Yes (Other)
  Sender: FDA-Public Use
  Company Number: PT-UNICHEM LABORATORIES LIMITED-UCM201606-000126

PATIENT
  Age: 14 Year
  Sex: Female

DRUGS (5)
  1. LAMOTRIGINE. [Suspect]
     Active Substance: LAMOTRIGINE
  2. FENETOINE [Suspect]
     Active Substance: PHENYTOIN
  3. PREGABALINE [Suspect]
     Active Substance: PREGABALIN
  4. CARABAMAZEPINE [Suspect]
     Active Substance: CARBAMAZEPINE
  5. LEVETIRACETAM. [Suspect]
     Active Substance: LEVETIRACETAM

REACTIONS (5)
  - Anxiety [Recovered/Resolved]
  - Agitation [Recovered/Resolved]
  - Seizure like phenomena [Recovered/Resolved]
  - Hallucination, auditory [Recovered/Resolved]
  - Hallucination, tactile [Recovered/Resolved]
